FAERS Safety Report 5718743-6 (Version None)
Quarter: 2008Q2

REPORT INFORMATION
  Report Type: 
  Country: None (occurrence: None)
  Receive Date: 20080425
  Receipt Date: 20080416
  Transmission Date: 20081010
  Serious: Yes (Hospitalization, Other)
  Sender: FDA-Public Use
  Company Number: PHHY2008JP05220

PATIENT
  Age: 76 Year
  Sex: Female
  Weight: 48 kg

DRUGS (5)
  1. COMTAN [Suspect]
     Indication: DRUG EFFECT DECREASED
     Dosage: 300 MG/DAY
     Route: 048
     Dates: start: 20070401
  2. COMTAN [Suspect]
     Dosage: 100 MG/DAY
  3. LEVODOPA [Concomitant]
     Indication: PARKINSON'S DISEASE
     Dosage: 400 MG/DAY
     Route: 048
  4. PRAMIPEXOLE DIHYDROCHLORIDE [Concomitant]
     Dosage: 1.5MG/DAY
     Route: 048
  5. DONEPEZIL HCL [Concomitant]
     Dosage: 5MG/DAY
     Route: 048
     Dates: start: 20070701, end: 20070801

REACTIONS (15)
  - AKINESIA [None]
  - ANAEMIA [None]
  - AUTONOMIC NERVOUS SYSTEM IMBALANCE [None]
  - COMPUTERISED TOMOGRAM ABDOMEN ABNORMAL [None]
  - CONSTIPATION [None]
  - DIARRHOEA [None]
  - DYSCHEZIA [None]
  - FLATULENCE [None]
  - GAIT DISTURBANCE [None]
  - HYPOKALAEMIA [None]
  - MALAISE [None]
  - ORAL INTAKE REDUCED [None]
  - PARKINSONISM [None]
  - PITTING OEDEMA [None]
  - WEIGHT DECREASED [None]
